FAERS Safety Report 19013405 (Version 1)
Quarter: 2021Q1

REPORT INFORMATION
  Report Type: Spontaneous
  Country: GB (occurrence: GB)
  Receive Date: 20210315
  Receipt Date: 20210315
  Transmission Date: 20210420
  Serious: Yes (Hospitalization, Other)
  Sender: FDA-Public Use
  Company Number: GB-PFIZER INC-2021234654

PATIENT
  Age: 13 Year
  Sex: Female

DRUGS (16)
  1. ORKAMBI [Suspect]
     Active Substance: IVACAFTOR\LUMACAFTOR
     Indication: CYSTIC FIBROSIS
     Dosage: 2 DOSAGE FORM (200/125 MG EACH), BID
     Route: 048
     Dates: start: 201908
  2. DEOXYRIBONUCLEASE HUMAN [Concomitant]
     Dosage: 2.5 MG, QD, NEB
     Route: 055
  3. SYMBICORT [Concomitant]
     Active Substance: BUDESONIDE\FORMOTEROL FUMARATE DIHYDRATE
     Dosage: UNK, BID
  4. CETIRIZINE [Concomitant]
     Active Substance: CETIRIZINE HYDROCHLORIDE
     Dosage: 10 MG, 1X/DAY
     Route: 048
  5. MENADIOL [Concomitant]
     Active Substance: MENADIOL
     Dosage: 10 MG, 1X/DAY
     Route: 048
  6. MOXIFLOXACIN. [Concomitant]
     Active Substance: MOXIFLOXACIN
     Dosage: 400 MG, 1X/DAY
     Route: 048
  7. AZITHROMYCIN ANHYDROUS. [Suspect]
     Active Substance: AZITHROMYCIN ANHYDROUS
     Dosage: 375 MG, 1X/DAY
     Route: 048
  8. PREDNISONE. [Concomitant]
     Active Substance: PREDNISONE
     Dosage: 2 DF, 1X/DAY
  9. PREDNISONE. [Concomitant]
     Active Substance: PREDNISONE
     Indication: ADRENAL SUPPRESSION
     Dosage: 5 MILLIGRAM, QD
  10. MINOCYCLINE [Suspect]
     Active Substance: MINOCYCLINE HYDROCHLORIDE
     Dosage: 100 MG, 1X/DAY
     Route: 048
  11. AMIKACIN. [Concomitant]
     Active Substance: AMIKACIN
     Dosage: 500 MG
     Route: 055
  12. CREON [Concomitant]
     Active Substance: PANCRELIPASE AMYLASE\PANCRELIPASE LIPASE\PANCRELIPASE PROTEASE
     Dosage: 1?4 WITH MEALS AND SNACKS
  13. OMEPRAZOLE. [Concomitant]
     Active Substance: OMEPRAZOLE
     Dosage: 20 MG, 1X/DAY
  14. VITAMIN A NOS [Concomitant]
     Active Substance: VITAMIN A
     Dosage: 2 DF, 1X/DAY
     Route: 048
  15. VITAMIN A NOS [Concomitant]
     Active Substance: VITAMIN A
     Dosage: 75 MG, 1X/DAY
     Route: 048
  16. VITAMIN D 2000 [Concomitant]
     Active Substance: VITAMIN D NOS
     Dosage: 2 DF, 1X/DAY
     Route: 048

REACTIONS (6)
  - Aspartate aminotransferase increased [Not Recovered/Not Resolved]
  - Hyperhidrosis [Unknown]
  - Alanine aminotransferase increased [Not Recovered/Not Resolved]
  - Hypoglycaemia [Recovered/Resolved]
  - Hypothermia [Recovered/Resolved]
  - Feeling cold [Unknown]

NARRATIVE: CASE EVENT DATE: 20190917
